FAERS Safety Report 4308435-2 (Version None)
Quarter: 2004Q1

REPORT INFORMATION
  Report Type: 
  Country: None (occurrence: None)
  Receive Date: 20040226
  Receipt Date: 20040122
  Transmission Date: 20041129
  Serious: Yes (Hospitalization)
  Sender: FDA-Public Use
  Company Number: 2003190991US

PATIENT
  Age: 50 Year
  Sex: Male
  Weight: 108.8 kg

DRUGS (14)
  1. CELEBREX [Suspect]
     Indication: ARTHRITIS
     Dosage: 100 MG, BID, ORAL
     Route: 048
     Dates: start: 20000910, end: 20010512
  2. ZESTRIL [Concomitant]
  3. CORDARONE [Concomitant]
  4. ZOLOFT [Concomitant]
  5. LANOXIN [Concomitant]
  6. ASPIRIN [Concomitant]
  7. DEMADEX [Concomitant]
  8. K-DUR 10 [Concomitant]
  9. NEURONTIN [Concomitant]
  10. COREG [Concomitant]
  11. COENZYME Q10 [Concomitant]
  12. SELENIUM TRACE METAL ADDITIVE [Concomitant]
  13. COUMADIN [Concomitant]
  14. INSULIN HUMULIN 70/30 (INSULIN HUMAN, INSULIN HUMAN INJECTION, ISOPHAN [Concomitant]

REACTIONS (6)
  - ASTHENIA [None]
  - ATRIAL FIBRILLATION [None]
  - ELECTROCARDIOGRAM QT PROLONGED [None]
  - GASTRIC ULCER [None]
  - HYPOAESTHESIA [None]
  - MYOCARDIAL INFARCTION [None]
